FAERS Safety Report 7370628-8 (Version None)
Quarter: 2011Q1

REPORT INFORMATION
  Report Type: 
  Country: None (occurrence: None)
  Receive Date: 20110323
  Receipt Date: 20110317
  Transmission Date: 20110831
  Serious: Yes (Other)
  Sender: FDA-Public Use
  Company Number: US-RB-024197-11

PATIENT
  Sex: Female

DRUGS (2)
  1. TRAZODONE [Concomitant]
     Indication: DEPRESSION
     Dosage: DOSAGE INFORMATION UNKNOWN
     Route: 065
  2. SUBOXONE [Suspect]
     Indication: DRUG DEPENDENCE
     Dosage: DOSAGE INFORMATION UNKNOWN- ONE TO TWO TABLETS DAILY
     Route: 060
     Dates: start: 20110209

REACTIONS (1)
  - EXTRAPYRAMIDAL DISORDER [None]
